FAERS Safety Report 6105846-X (Version None)
Quarter: 2009Q1

REPORT INFORMATION
  Report Type: 
  Country: None (occurrence: None)
  Receive Date: 20090306
  Receipt Date: 20090224
  Transmission Date: 20090719
  Serious: Yes (Other)
  Sender: FDA-Public Use
  Company Number: US-PFIZER INC-2009160928

PATIENT
  Sex: Female

DRUGS (8)
  1. BEXTRA [Suspect]
     Indication: ARTHRALGIA
     Dosage: 10 MG, 1X/DAY
     Route: 048
     Dates: start: 20040803
  2. BEXTRA [Suspect]
     Indication: EPICONDYLITIS
  3. THYROID TAB [Concomitant]
     Dosage: 130 MG, 1X/DAY
     Route: 048
  4. PROTONIX [Concomitant]
     Dosage: 40 MG, 1X/DAY
     Route: 048
  5. PLAVIX [Concomitant]
  6. LIPITOR [Concomitant]
  7. ASPIRIN [Concomitant]
     Dosage: 325 MG, 1X/DAY
     Route: 048
  8. LISINOPRIL [Concomitant]
     Dosage: 10 MG, 1X/DAY

REACTIONS (1)
  - MYOCARDIAL INFARCTION [None]
